FAERS Safety Report 8843701 (Version 2)
Quarter: 2012Q4

REPORT INFORMATION
  Report Type: 
  Country: US (occurrence: US)
  Receive Date: 20121016
  Receipt Date: 20121031
  Transmission Date: 20130627
  Serious: No
  Sender: FDA-Public Use
  Company Number: US-VERTEX PHARMACEUTICAL INC.-2012-022372

PATIENT
  Age: 52 Year
  Sex: Male
  Weight: 109 kg

DRUGS (3)
  1. VX-950 [Suspect]
     Indication: HEPATITIS C
     Dosage: 750 mg, tid
     Route: 048
     Dates: start: 20120912
  2. RIBASPHERE [Suspect]
     Indication: HEPATITIS C
     Dosage: 600 mg, bid
     Route: 048
     Dates: start: 20120912
  3. PEGASYS [Suspect]
     Indication: HEPATITIS C
     Dosage: 180 ?g, qw
     Route: 058
     Dates: start: 20120912

REACTIONS (5)
  - Muscle spasms [Unknown]
  - Insomnia [Unknown]
  - Fatigue [Unknown]
  - Anaemia [Unknown]
  - Nausea [Unknown]
